FAERS Safety Report 5603339-7 (Version None)
Quarter: 2008Q1

REPORT INFORMATION
  Report Type: 
  Country: None (occurrence: None)
  Receive Date: 20080122
  Receipt Date: 20080116
  Transmission Date: 20080703
  Serious: Yes (Hospitalization, Other)
  Sender: FDA-Public Use
  Company Number: 08012380

PATIENT
  Age: 41 Year
  Sex: Male

DRUGS (4)
  1. CLOMIPRAMINE HCL [Suspect]
     Indication: OBSESSIVE-COMPULSIVE DISORDER
     Dosage: 50MG,QD, ORAL
     Route: 048
  2. CARBAZEPINE (CARBAZEPINE) [Concomitant]
  3. TEPRENONE (TEPRENONE) [Concomitant]
  4. VALPROATE SODIUM [Concomitant]

REACTIONS (8)
  - ANOREXIA [None]
  - ANURIA [None]
  - ARTHRALGIA [None]
  - DIARRHOEA [None]
  - HAEMODIALYSIS [None]
  - NEPHRITIS INTERSTITIAL [None]
  - RENAL FAILURE ACUTE [None]
  - SOMATOFORM DISORDER [None]
